FAERS Safety Report 13405281 (Version 1)
Quarter: 2017Q2

REPORT INFORMATION
  Report Type: Spontaneous
  Country: JP (occurrence: JP)
  Receive Date: 20170405
  Receipt Date: 20170405
  Transmission Date: 20170830
  Serious: Yes (Other)
  Sender: FDA-Public Use
  Company Number: JP-GLAXOSMITHKLINE-JP2017JPN045729

PATIENT
  Age: 4 Decade
  Sex: Female

DRUGS (5)
  1. CODEINE PHOSPHATE HYDRATE [Concomitant]
     Active Substance: CODEINE PHOSPHATE
     Dosage: UNK
  2. FLUTICASONE NASAL SOLUTION [Concomitant]
     Dosage: UNK
  3. FLUTIDE [Suspect]
     Active Substance: FLUTICASONE PROPIONATE
     Dosage: UNK
     Route: 055
  4. FLUTIDE [Suspect]
     Active Substance: FLUTICASONE PROPIONATE
     Dosage: 1 DF, QD
     Route: 055
  5. CELESTAMINE [Concomitant]
     Active Substance: BETAMETHASONE\DEXCHLORPHENIRAMINE MALEATE
     Dosage: UNK

REACTIONS (2)
  - Gastric disorder [Unknown]
  - Oesophageal candidiasis [Recovering/Resolving]

NARRATIVE: CASE EVENT DATE: 20170330
